FAERS Safety Report 4702861-5 (Version None)
Quarter: 2005Q2

REPORT INFORMATION
  Report Type: 
  Country: None (occurrence: None)
  Receive Date: 20050623
  Receipt Date: 20050609
  Transmission Date: 20051028
  Serious: Yes (Hospitalization, Other)
  Sender: FDA-Public Use
  Company Number: US138191

PATIENT
  Age: 21 Year
  Sex: Female

DRUGS (4)
  1. ENBREL [Suspect]
     Indication: PSORIATIC ARTHROPATHY
     Dosage: 25 MG, 2 IN 1 WEEKS, SC
     Route: 058
  2. SULFASALAZINE [Concomitant]
  3. LAMOTRIGINE [Concomitant]
  4. INDOMETHACIN [Concomitant]

REACTIONS (1)
  - MANIA [None]
